FAERS Safety Report 12961165 (Version 1)
Quarter: 2016Q4

REPORT INFORMATION
  Report Type: Spontaneous
  Country: US (occurrence: US)
  Receive Date: 20161121
  Receipt Date: 20161121
  Transmission Date: 20170207
  Serious: No
  Sender: FDA-Public Use
  Company Number: US-PFIZER INC-2016531496

PATIENT
  Age: 57 Year
  Sex: Female

DRUGS (2)
  1. BUTRANS [Suspect]
     Active Substance: BUPRENORPHINE
     Dosage: 20 UG, 1X/DAY
  2. BUPRENORPHINE. [Suspect]
     Active Substance: BUPRENORPHINE
     Dosage: UNK

REACTIONS (5)
  - Pruritus [Unknown]
  - Peripheral swelling [Unknown]
  - Joint swelling [Unknown]
  - Drug hypersensitivity [Unknown]
  - Rash [Unknown]
